FAERS Safety Report 8159699-9 (Version None)
Quarter: 2012Q1

REPORT INFORMATION
  Report Type: 
  Country: None (occurrence: None)
  Receive Date: 20120223
  Receipt Date: 20120217
  Transmission Date: 20120608
  Serious: Yes (Other)
  Sender: FDA-Public Use
  Company Number: US-JNJFOC-20120210948

PATIENT
  Sex: Female

DRUGS (2)
  1. CHILDREN'S BENADRYL ALLERGY [Suspect]
     Route: 048
  2. CHILDREN'S BENADRYL ALLERGY [Suspect]
     Indication: SLEEP DISORDER THERAPY
     Route: 048

REACTIONS (3)
  - GROWTH RETARDATION [None]
  - WRONG DRUG ADMINISTERED [None]
  - OFF LABEL USE [None]
